FAERS Safety Report 4355969-0 (Version None)
Quarter: 2004Q2

REPORT INFORMATION
  Report Type: 
  Country: None (occurrence: None)
  Receive Date: 20040507
  Receipt Date: 20040507
  Transmission Date: 20050107
  Serious: Yes (Death)
  Sender: FDA-Public Use
  Company Number: None

PATIENT
  Sex: Male
  Weight: 54.4316 kg

DRUGS (3)
  1. DURAGESIC [Suspect]
     Indication: PAIN
     Dosage: 1PATCH TO SKIN EVERY 3 DAY
     Dates: start: 20040325, end: 20040326
  2. OXYCODONE HCL [Concomitant]
  3. MEGESTROL [Concomitant]

REACTIONS (2)
  - DYSPNOEA [None]
  - LIFE SUPPORT [None]
